FAERS Safety Report 4984805-4 (Version None)
Quarter: 2006Q2

REPORT INFORMATION
  Report Type: 
  Country: None (occurrence: None)
  Receive Date: 20060419
  Receipt Date: 20060411
  Transmission Date: 20061013
  Serious: Yes (Other)
  Sender: FDA-Public Use
  Company Number: 2006049585

PATIENT
  Age: 62 Year
  Sex: Female
  Weight: 49.8957 kg

DRUGS (2)
  1. SUDAFED DECONGESTANT EXTRA STRENGTH (PSEUDOEPHEDRINE) [Suspect]
     Indication: INFLUENZA
     Dosage: 12 TABS WITHIN 24 HOURS, 1 TAB EVERY 2 HR, ORAL
     Route: 048
     Dates: start: 20060410
  2. ANTI-ASTHMATICS (ANTI-ASTHMATICS) [Suspect]
     Indication: ASTHMA

REACTIONS (3)
  - FEELING ABNORMAL [None]
  - INTENTIONAL DRUG MISUSE [None]
  - SOMNOLENCE [None]
